FAERS Safety Report 5515416-X (Version None)
Quarter: 2007Q4

REPORT INFORMATION
  Report Type: 
  Country: None (occurrence: None)
  Receive Date: 20071113
  Receipt Date: 20070212
  Transmission Date: 20080405
  Serious: No
  Sender: FDA-Public Use
  Company Number: A0639209A

PATIENT
  Age: 76 Year
  Sex: Female

DRUGS (4)
  1. COREG [Suspect]
     Indication: HYPERTENSION
     Dosage: 25MG TWICE PER DAY
     Route: 048
  2. AMARYL [Concomitant]
  3. PROTONIX [Concomitant]
  4. GLUCOPHAGE [Concomitant]

REACTIONS (2)
  - ANOREXIA [None]
  - NAUSEA [None]
